FAERS Safety Report 18528554 (Version 1)
Quarter: 2020Q4

REPORT INFORMATION
  Report Type: Spontaneous
  Country: SE (occurrence: SE)
  Receive Date: 20201120
  Receipt Date: 20201120
  Transmission Date: 20210114
  Serious: Yes (Other)
  Sender: FDA-Public Use
  Company Number: SE-GILEAD-2020-0505130

PATIENT
  Age: 69 Year
  Sex: Male

DRUGS (7)
  1. REMDESIVIR. [Suspect]
     Active Substance: REMDESIVIR
     Indication: COVID-19
     Dosage: UNK
     Route: 042
     Dates: start: 20201029, end: 20201101
  2. DEXAMETHASONE. [Concomitant]
     Active Substance: DEXAMETHASONE
  3. BETOLVEX [CYANOCOBALAMIN] [Concomitant]
     Active Substance: CYANOCOBALAMIN
  4. IPRAMOL [Concomitant]
     Active Substance: ALBUTEROL SULFATE\IPRATROPIUM BROMIDE
  5. SYMBICORT [Concomitant]
     Active Substance: BUDESONIDE\FORMOTEROL FUMARATE DIHYDRATE
  6. FRAGMIN [Concomitant]
     Active Substance: DALTEPARIN SODIUM
  7. CEFOTAXIME [Concomitant]
     Active Substance: CEFOTAXIME SODIUM

REACTIONS (1)
  - Bradycardia [Unknown]

NARRATIVE: CASE EVENT DATE: 20201031
